FAERS Safety Report 8870822 (Version 2)
Quarter: 2013Q2

REPORT INFORMATION
  Report Type: Spontaneous
  Country: US (occurrence: US)
  Receive Date: 20121029
  Receipt Date: 20130519
  Transmission Date: 20140414
  Serious: Yes (Other)
  Sender: FDA-Public Use
  Company Number: US-BRISTOL-MYERS SQUIBB COMPANY-17048406

PATIENT
  Age: 77 Year
  Sex: Female
  Weight: 88.43 kg

DRUGS (1)
  1. ABATACEPT SUBQ INJECTION 125MG/ML [Suspect]
     Indication: RHEUMATOID ARTHRITIS
     Dosage: STARTED ON FEB OR MAR 2012,LAST INJ:16OCT2012,ORENCIA?LOT#2K74188,EXP DT:MAY14
     Route: 058
     Dates: start: 201202

REACTIONS (6)
  - Fall [Unknown]
  - Ankle fracture [Unknown]
  - Urinary tract infection [Unknown]
  - Flank pain [Unknown]
  - Weight decreased [Unknown]
  - Incorrect storage of drug [Unknown]
